FAERS Safety Report 25915387 (Version 1)
Quarter: 2025Q4

REPORT INFORMATION
  Report Type: Spontaneous
  Country: US (occurrence: US)
  Receive Date: 20251013
  Receipt Date: 20251013
  Transmission Date: 20260118
  Serious: No
  Sender: ANI
  Company Number: US-ANIPHARMA-2025-US-035188

PATIENT
  Sex: Female

DRUGS (20)
  1. CORTICOTROPIN [Suspect]
     Active Substance: CORTICOTROPIN
     Indication: Gout
     Dosage: INJECT 80 UNITS (1ML) SUBCUTANEOUSLY TWO TIMES PER WEEK
     Route: 058
     Dates: start: 202506
  2. PREVACID [Concomitant]
     Active Substance: LANSOPRAZOLE
  3. IRON [Concomitant]
     Active Substance: IRON
  4. D-3-5 [Concomitant]
  5. COENZYME Q10 [Concomitant]
     Active Substance: DIETARY SUPPLEMENT\UBIDECARENONE
  6. HAIR SKIN AND NAILS FORMU [Concomitant]
  7. VITAMIN C [Concomitant]
     Active Substance: ASCORBIC ACID
  8. FLINTSTONES GUMMIES/IMMUN [Concomitant]
  9. VITAMIN B12 TR [Concomitant]
  10. MAGNESIUM GLUCONATE [Concomitant]
     Active Substance: MAGNESIUM GLUCONATE
  11. WEGOVY [Concomitant]
     Active Substance: SEMAGLUTIDE
  12. BUMETANIDE [Concomitant]
     Active Substance: BUMETANIDE
  13. REPATHA [Concomitant]
     Active Substance: EVOLOCUMAB
  14. SYNTHROID [Concomitant]
     Active Substance: LEVOTHYROXINE SODIUM
  15. SOTALOL HCL (AF) [Concomitant]
  16. ELIQUIS [Concomitant]
     Active Substance: APIXABAN
  17. LISINOPRIL [Concomitant]
     Active Substance: LISINOPRIL
  18. COLCHICINE [Concomitant]
     Active Substance: COLCHICINE
  19. POTASSIUM CHLORIDE [Concomitant]
     Active Substance: POTASSIUM CHLORIDE
  20. ASPIRIN [Concomitant]
     Active Substance: ASPIRIN

REACTIONS (4)
  - Drug effect less than expected [Unknown]
  - Swelling face [Unknown]
  - Peripheral swelling [Unknown]
  - Contusion [Unknown]
